FAERS Safety Report 18604322 (Version 3)
Quarter: 2021Q1

REPORT INFORMATION
  Report Type: Spontaneous
  Country: FR (occurrence: FR)
  Receive Date: 20201211
  Receipt Date: 20210315
  Transmission Date: 20210419
  Serious: Yes (Life-Threatening, Other)
  Sender: FDA-Public Use
  Company Number: FR-BRISTOL-MYERS SQUIBB COMPANY-BMS-2020-105233

PATIENT
  Age: 60 Year
  Sex: Female

DRUGS (5)
  1. IMETH [METHOTREXATE] [Suspect]
     Active Substance: METHOTREXATE
     Dosage: UNK
     Route: 058
     Dates: start: 2020
  2. ORENCIA [Suspect]
     Active Substance: ABATACEPT
     Indication: RHEUMATOID ARTHRITIS
     Dosage: UNK
     Route: 065
     Dates: start: 201902, end: 20200925
  3. IMETH [METHOTREXATE] [Suspect]
     Active Substance: METHOTREXATE
     Indication: RHEUMATOID ARTHRITIS
     Dosage: 20 MILLIGRAM, QWK
     Route: 048
     Dates: start: 2012, end: 20200925
  4. OPTRUMA [Concomitant]
     Active Substance: RALOXIFENE HYDROCHLORIDE
     Indication: WRIST FRACTURE
  5. OPTRUMA [Concomitant]
     Active Substance: RALOXIFENE HYDROCHLORIDE
     Indication: OSTEOPENIA
     Dosage: 60 MILLIGRAM, QD
     Dates: start: 2011

REACTIONS (1)
  - Invasive breast carcinoma [Recovering/Resolving]

NARRATIVE: CASE EVENT DATE: 20200928
